FAERS Safety Report 15320434 (Version 1)
Quarter: 2018Q3

REPORT INFORMATION
  Report Type: Spontaneous
  Country: US (occurrence: US)
  Receive Date: 20180821
  Receipt Date: 20180821
  Transmission Date: 20181010
  Serious: Yes (Other)
  Sender: FDA-Public Use
  Company Number: None

PATIENT
  Age: 71 Year
  Sex: Female
  Weight: 46.8 kg

DRUGS (22)
  1. ALENDRONATE [Concomitant]
     Active Substance: ALENDRONATE SODIUM
  2. OXYBUTININ [Concomitant]
     Active Substance: OXYBUTYNIN
  3. VANCOMYCIN [Concomitant]
     Active Substance: VANCOMYCIN
  4. VERZENIO [Suspect]
     Active Substance: ABEMACICLIB
     Indication: BREAST CANCER
     Route: 048
     Dates: start: 20180618
  5. ABRAXANE [Concomitant]
     Active Substance: PACLITAXEL
  6. ASPIRIN. [Concomitant]
     Active Substance: ASPIRIN
  7. NITROFURANTOIN. [Concomitant]
     Active Substance: NITROFURANTOIN
  8. IPRATROPIUM?ALBUTEROL [Concomitant]
     Active Substance: ALBUTEROL\IPRATROPIUM
  9. ENALAPRIL [Concomitant]
     Active Substance: ENALAPRIL
  10. ESCITALOPRAM [Concomitant]
     Active Substance: ESCITALOPRAM OXALATE
  11. ENALAPRIL [Concomitant]
     Active Substance: ENALAPRIL
  12. FASLODEX [Concomitant]
     Active Substance: FULVESTRANT
  13. GABAPENTIN. [Concomitant]
     Active Substance: GABAPENTIN
  14. VENTOLIN [Concomitant]
     Active Substance: ALBUTEROL SULFATE
  15. ATORVASTATIN [Concomitant]
     Active Substance: ATORVASTATIN
  16. CALCIUM [Concomitant]
     Active Substance: CALCIUM
  17. CEFAZOLIN [Concomitant]
     Active Substance: CEFAZOLIN
  18. ADVAIR HFA [Concomitant]
     Active Substance: FLUTICASONE PROPIONATE\SALMETEROL XINAFOATE
  19. BREO ELLIPTA [Concomitant]
     Active Substance: FLUTICASONE FUROATE\VILANTEROL TRIFENATATE
  20. METOPROLOL. [Concomitant]
     Active Substance: METOPROLOL
  21. MONTELUKAST [Concomitant]
     Active Substance: MONTELUKAST SODIUM
  22. PANTOPRAZOLE [Concomitant]
     Active Substance: PANTOPRAZOLE

REACTIONS (1)
  - White blood cell count decreased [None]

NARRATIVE: CASE EVENT DATE: 20180821
